FAERS Safety Report 7770890-3 (Version None)
Quarter: 2011Q3

REPORT INFORMATION
  Report Type: 
  Country: None (occurrence: None)
  Receive Date: 20110922
  Receipt Date: 20100412
  Transmission Date: 20111222
  Serious: Yes (Hospitalization)
  Sender: FDA-Public Use
  Company Number: US-ASTRAZENECA-2009UW02353

PATIENT
  Age: 9600 Day
  Sex: Female

DRUGS (17)
  1. SEROQUEL [Suspect]
     Indication: ANXIETY
     Route: 048
     Dates: start: 20020226
  2. SEROQUEL [Suspect]
     Dosage: 200 MG TO 300 MG
     Route: 048
     Dates: start: 20060103
  3. SEROQUEL [Suspect]
     Dosage: 200 MG TO 300 MG
     Route: 048
     Dates: start: 20060103
  4. SEROQUEL [Suspect]
     Indication: DEPRESSION
     Route: 048
     Dates: start: 20020226
  5. FLUOXETINE [Concomitant]
     Dates: start: 20020113
  6. SEROQUEL [Suspect]
     Route: 048
     Dates: start: 20050101, end: 20050801
  7. HYDROXYZINE PAM [Concomitant]
     Dates: start: 20060103
  8. TRAZODONE HCL [Concomitant]
     Dates: start: 20060201
  9. LIPITOR [Concomitant]
     Dates: start: 20020226
  10. IBUPROFEN [Concomitant]
     Indication: HEADACHE
     Dates: start: 20070911
  11. LITHIUM CARBONATE [Concomitant]
     Dates: start: 20060103
  12. SEROQUEL [Suspect]
     Indication: BIPOLAR DISORDER
     Route: 048
     Dates: start: 20020226
  13. GEODON [Concomitant]
     Dosage: 20 MG TO 40 MG
     Dates: start: 20011118
  14. SEROQUEL [Suspect]
     Route: 048
     Dates: start: 20050101, end: 20050801
  15. SEROQUEL [Suspect]
     Dosage: 200 MG TO 300 MG
     Route: 048
     Dates: start: 20060103
  16. SYNTHROID [Concomitant]
     Dosage: 100 MCG TO 112 MCG
     Dates: start: 20020131
  17. SEROQUEL [Suspect]
     Route: 048
     Dates: start: 20050101, end: 20050801

REACTIONS (1)
  - TYPE 2 DIABETES MELLITUS [None]
